FAERS Safety Report 5880891-8 (Version None)
Quarter: 2008Q3

REPORT INFORMATION
  Report Type: 
  Country: None (occurrence: None)
  Receive Date: 20080912
  Receipt Date: 20080612
  Transmission Date: 20090109
  Serious: No
  Sender: FDA-Public Use
  Company Number: US-ABBOTT-08P-163-0456992-00

PATIENT
  Sex: Female
  Weight: 44.038 kg

DRUGS (3)
  1. HUMIRA [Suspect]
     Indication: RHEUMATOID ARTHRITIS
     Route: 058
     Dates: start: 20080201
  2. PREDNISONE TAB [Concomitant]
     Indication: RHEUMATOID ARTHRITIS
     Route: 048
     Dates: start: 19910101
  3. LORATADINE [Concomitant]
     Indication: PAIN
     Dates: start: 20000101

REACTIONS (5)
  - COUGH [None]
  - HEADACHE [None]
  - OROPHARYNGEAL PAIN [None]
  - RESPIRATORY TRACT INFECTION [None]
  - UNDERDOSE [None]
